FAERS Safety Report 4376878-7 (Version None)
Quarter: 2004Q2

REPORT INFORMATION
  Report Type: 
  Country: None (occurrence: None)
  Receive Date: 20040608
  Receipt Date: 20030602
  Transmission Date: 20050107
  Serious: Yes (Other)
  Sender: FDA-Public Use
  Company Number: 200311867BCC

PATIENT
  Age: 45 Year
  Sex: Male
  Weight: 150 kg

DRUGS (7)
  1. ALEVE [Suspect]
     Indication: BACK PAIN
     Dosage: 440 MG, QD, ORAL
     Route: 048
     Dates: start: 20030529, end: 20030601
  2. REXALL VITAMIN B12 [Concomitant]
  3. FOLIC ACID [Concomitant]
  4. ADVANCED IRON [Concomitant]
  5. POTASSIUM [Concomitant]
  6. TARGET MULTIVITAMIN [Concomitant]
  7. GUARANTEE NASAL DECONGESTANT [Concomitant]

REACTIONS (1)
  - DYSPNOEA [None]
